FAERS Safety Report 18793188 (Version 2)
Quarter: 2021Q1

REPORT INFORMATION
  Report Type: Spontaneous
  Country: CY (occurrence: CY)
  Receive Date: 20210127
  Receipt Date: 20210217
  Transmission Date: 20210419
  Serious: Yes (Hospitalization, Other)
  Sender: FDA-Public Use
  Company Number: CY-PFIZER INC-2021063352

PATIENT
  Age: 50 Year
  Sex: Male

DRUGS (3)
  1. MOVESAN [Concomitant]
     Dosage: UNK
  2. FOLICIL [Concomitant]
     Active Substance: FOLIC ACID
     Dosage: 5 MG
  3. METHOTREXATE SODIUM. [Suspect]
     Active Substance: METHOTREXATE SODIUM
     Indication: RHEUMATOID ARTHRITIS
     Dosage: 6 DF, WEEKLY, REPEATED TWICE
     Dates: start: 20210119

REACTIONS (1)
  - Blood pressure increased [Not Recovered/Not Resolved]

NARRATIVE: CASE EVENT DATE: 20210120
